FAERS Safety Report 4593028-2 (Version None)
Quarter: 2005Q1

REPORT INFORMATION
  Report Type: 
  Country: None (occurrence: None)
  Receive Date: 20050228
  Receipt Date: 20050218
  Transmission Date: 20050727
  Serious: Yes (Hospitalization)
  Sender: FDA-Public Use
  Company Number: BR-ABBOTT-05P-020-0291596-00

PATIENT
  Age: 3 Year
  Sex: Male
  Weight: 15.6 kg

DRUGS (3)
  1. DEPAKENE [Suspect]
     Indication: DRUG USE FOR UNKNOWN INDICATION
     Dosage: 3 ML EVERY 12 HOURS
     Route: 048
     Dates: start: 20050202, end: 20050216
  2. DEPAKENE [Suspect]
     Dosage: 5 ML EVERY 12 HOURS
     Route: 048
     Dates: start: 20050217
  3. SONIBON [Concomitant]
     Indication: MUSCLE RELAXANT THERAPY
     Route: 048
     Dates: start: 20050202

REACTIONS (3)
  - CONVULSION [None]
  - DIARRHOEA [None]
  - DRUG INEFFECTIVE [None]
